FAERS Safety Report 6242487-8 (Version None)
Quarter: 2009Q2

REPORT INFORMATION
  Report Type: 
  Country: None (occurrence: None)
  Receive Date: 20090622
  Receipt Date: 20090622
  Transmission Date: 20091009
  Serious: Yes (Other)
  Sender: FDA-Public Use
  Company Number: None

PATIENT
  Sex: Male
  Weight: 64 kg

DRUGS (1)
  1. PROLEUKIN [Suspect]
     Indication: RENAL CANCER METASTATIC
     Dosage: 38.8 MIU EVERY 8 HOURS IV BOLUS
     Route: 040
     Dates: start: 20090615

REACTIONS (10)
  - BLOOD PRESSURE SYSTOLIC INCREASED [None]
  - CAPILLARY LEAK SYNDROME [None]
  - CHILLS [None]
  - HEART RATE INCREASED [None]
  - HYPOTENSION [None]
  - MALIGNANT PLEURAL EFFUSION [None]
  - RESPIRATORY DISTRESS [None]
  - RESPIRATORY FAILURE [None]
  - SINUS TACHYCARDIA [None]
  - SOMNOLENCE [None]
